FAERS Safety Report 4274769-3 (Version None)
Quarter: 2004Q1

REPORT INFORMATION
  Report Type: 
  Country: None (occurrence: None)
  Receive Date: 20040120
  Receipt Date: 20021209
  Transmission Date: 20041129
  Serious: Yes (Hospitalization)
  Sender: FDA-Public Use
  Company Number: US-BRISTOL-MYERS SQUIBB COMPANY-12130522

PATIENT
  Age: 73 Year
  Sex: Female

DRUGS (16)
  1. PRAVASTATIN SODIUM [Suspect]
     Dosage: THERAPY PREVIOUSLY DISCONTINUED. LAST DOSE PRIOR TO EVENT IN JUL-2002
     Route: 048
     Dates: start: 20010716
  2. COUMADIN [Suspect]
     Indication: ATRIAL FIBRILLATION
     Route: 048
  3. COUMADIN [Suspect]
     Indication: DEEP VEIN THROMBOSIS
     Route: 048
  4. PLACEBO [Suspect]
     Dosage: THERAPY PREVIOUSLY DISCONTINUED. LAST DOSE PRIOR TO EVENT ON 16-APR-2002
     Route: 048
     Dates: start: 20010801
  5. CHEMOTHERAPY [Suspect]
     Indication: MESOTHELIOMA MALIGNANT
  6. CARDIZEM [Concomitant]
     Route: 048
     Dates: start: 20020413
  7. AMIODARONE HCL [Concomitant]
     Route: 048
     Dates: start: 20020414
  8. SYNTHROID [Concomitant]
     Route: 048
  9. LANOXIN [Concomitant]
     Route: 048
  10. ALTACE [Concomitant]
     Route: 048
     Dates: start: 20010710
  11. THEO-24 [Concomitant]
     Route: 048
  12. PROCRIT [Concomitant]
     Route: 058
  13. ASPIRIN [Concomitant]
     Route: 048
  14. NEUPOGEN [Concomitant]
  15. LASIX [Concomitant]
  16. K-DUR 10 [Concomitant]

REACTIONS (3)
  - FAECES DISCOLOURED [None]
  - GASTROINTESTINAL HAEMORRHAGE [None]
  - THROMBOCYTOPENIA [None]
